FAERS Safety Report 8493398-9 (Version None)
Quarter: 2012Q3

REPORT INFORMATION
  Report Type: 
  Country: None (occurrence: None)
  Receive Date: 20120706
  Receipt Date: 20120629
  Transmission Date: 20120928
  Serious: Yes (Hospitalization)
  Sender: FDA-Public Use
  Company Number: US-JNJFOC-20120108665

PATIENT
  Age: 50 Year
  Sex: Female
  Weight: 76.2 kg

DRUGS (5)
  1. DIPHENHYDRAMINE HCL [Suspect]
     Indication: PRODUCT USED FOR UNKNOWN INDICATION
     Dates: start: 20120101
  2. ZOLPIDEM [Concomitant]
  3. VICODIN [Concomitant]
  4. CYCLOBENZAPRINE [Concomitant]
  5. TYLENOL COLD + COUGH NIGHTIME [Suspect]
     Indication: PRODUCT USED FOR UNKNOWN INDICATION
     Dates: start: 20120101

REACTIONS (3)
  - COMA [None]
  - MULTIPLE DRUG OVERDOSE [None]
  - TRANSAMINASES INCREASED [None]
